FAERS Safety Report 23846203 (Version 1)
Quarter: 2024Q2

REPORT INFORMATION
  Report Type: Report from Study
  Country: US (occurrence: US)
  Receive Date: 20240512
  Receipt Date: 20240512
  Transmission Date: 20240715
  Serious: Yes (Other)
  Sender: FDA-Public Use
  Company Number: US-ABBVIE-5752443

PATIENT
  Sex: Female

DRUGS (29)
  1. VENCLEXTA [Suspect]
     Active Substance: VENETOCLAX
     Indication: Chronic lymphocytic leukaemia
     Dosage: STARTED WEEK 5
     Route: 048
     Dates: start: 20200507
  2. VENCLEXTA [Suspect]
     Active Substance: VENETOCLAX
     Indication: Chronic lymphocytic leukaemia
     Dosage: STARTER PACK. STARTED WEEK 1
     Route: 048
     Dates: start: 20200409
  3. VENCLEXTA [Suspect]
     Active Substance: VENETOCLAX
     Indication: Chronic lymphocytic leukaemia
     Dosage: STARTER PACK. STARTED WEEK 2
     Route: 048
     Dates: start: 20200416
  4. VENCLEXTA [Suspect]
     Active Substance: VENETOCLAX
     Indication: Chronic lymphocytic leukaemia
     Dosage: STARTER PACK. STARTED WEEK 3
     Route: 048
     Dates: start: 20200423
  5. VENCLEXTA [Suspect]
     Active Substance: VENETOCLAX
     Indication: Chronic lymphocytic leukaemia
     Dosage: STARTER PACK. STARTED WEEK 4
     Route: 048
     Dates: start: 20200430
  6. CLONIDINE HYDROCHLORIDE [Concomitant]
     Active Substance: CLONIDINE HYDROCHLORIDE
     Indication: Product used for unknown indication
     Dosage: TWICE A DAY
     Route: 048
  7. FERROUS SULFATE [Concomitant]
     Active Substance: FERROUS SULFATE
     Indication: Product used for unknown indication
     Dosage: 325 MG (65 MG IRON) .
     Route: 048
  8. HYDRALAZINE [Concomitant]
     Active Substance: HYDRALAZINE HYDROCHLORIDE
     Indication: Product used for unknown indication
     Dosage: TIME INTERVAL: 0.33333333 DAYS
     Route: 048
  9. IRON [Concomitant]
     Active Substance: IRON
     Indication: Product used for unknown indication
     Route: 048
  10. MAGNESIUM OXIDE [Concomitant]
     Active Substance: MAGNESIUM OXIDE
     Indication: Product used for unknown indication
     Dosage: 400 (241.3 MG) MG
     Route: 048
  11. Optimal-D [Concomitant]
     Indication: Product used for unknown indication
     Dosage: 50000 UNIT.
     Route: 048
  12. PAMIDRONATE [Concomitant]
     Active Substance: PAMIDRONATE DISODIUM
     Indication: Hypercalcaemia
     Dosage: CARTI PAMIDRONATE
     Dates: start: 20211217
  13. PAMIDRONATE [Concomitant]
     Active Substance: PAMIDRONATE DISODIUM
     Indication: Hypercalcaemia
     Dosage: CARTI PAMIDRONATE
     Dates: start: 20210728
  14. Potassium (KCL) [Concomitant]
     Indication: Infusion
     Dates: start: 20211217
  15. TREANDA [Concomitant]
     Active Substance: BENDAMUSTINE HYDROCHLORIDE
     Indication: Product used for unknown indication
     Dosage: ON DAY 1 AND 2, Q28 DAY CYCLE
  16. GAZYVA [Suspect]
     Active Substance: OBINUTUZUMAB
     Indication: Chronic lymphocytic leukaemia
     Dosage: CYCLE 1 DAY 1
     Route: 042
     Dates: start: 20200319
  17. GAZYVA [Suspect]
     Active Substance: OBINUTUZUMAB
     Indication: Chronic lymphocytic leukaemia
     Dosage: CYCLE 1 DAY 2
     Route: 042
     Dates: start: 20200320
  18. GAZYVA [Suspect]
     Active Substance: OBINUTUZUMAB
     Indication: Chronic lymphocytic leukaemia
     Dosage: CYCLE 1 DAY 15
     Route: 042
     Dates: start: 20200402
  19. GAZYVA [Suspect]
     Active Substance: OBINUTUZUMAB
     Indication: Chronic lymphocytic leukaemia
     Dosage: CYCLE 1 DAY 8
     Route: 042
     Dates: start: 20200326
  20. GAZYVA [Suspect]
     Active Substance: OBINUTUZUMAB
     Indication: Chronic lymphocytic leukaemia
     Dosage: CYCLE 4
     Dates: start: 20200911
  21. GAZYVA [Suspect]
     Active Substance: OBINUTUZUMAB
     Indication: Chronic lymphocytic leukaemia
     Dosage: CYCLE 2
     Dates: start: 20200416
  22. GAZYVA [Suspect]
     Active Substance: OBINUTUZUMAB
     Indication: Chronic lymphocytic leukaemia
     Dosage: CYCLE 3
     Dates: start: 20200514
  23. GAZYVA [Suspect]
     Active Substance: OBINUTUZUMAB
     Indication: Chronic lymphocytic leukaemia
     Dosage: CYCLE 5
     Dates: start: 20200709
  24. GAZYVA [Suspect]
     Active Substance: OBINUTUZUMAB
     Indication: Chronic lymphocytic leukaemia
     Dosage: CYCLE 6
     Dates: start: 20200806
  25. PANTOPRAZOLE [Concomitant]
     Active Substance: PANTOPRAZOLE
     Indication: Product used for unknown indication
     Route: 048
  26. POTASSIUM CHLORIDE [Concomitant]
     Active Substance: POTASSIUM CHLORIDE
     Indication: Product used for unknown indication
     Route: 048
  27. SODIUM CHLORIDE [Concomitant]
     Active Substance: SODIUM CHLORIDE
     Indication: Product used for unknown indication
     Dosage: CARTI HYDRATION. ?1000 ML V
     Dates: start: 20220103
  28. SODIUM CHLORIDE [Concomitant]
     Active Substance: SODIUM CHLORIDE
     Indication: Product used for unknown indication
     Dosage: CARTI HYDRATION
     Dates: start: 20210728
  29. DENOSUMAB [Concomitant]
     Active Substance: DENOSUMAB
     Indication: Product used for unknown indication
     Dosage: Q4 WEEKS V2.O?CARTI DENOSUMAB (XGEVA SQ)
     Route: 058
     Dates: start: 20220103

REACTIONS (13)
  - Tumour lysis syndrome [Not Recovered/Not Resolved]
  - Fatigue [Unknown]
  - Splenomegaly [Unknown]
  - Granulomatous liver disease [Not Recovered/Not Resolved]
  - Low lung compliance [Not Recovered/Not Resolved]
  - Acute kidney injury [Unknown]
  - Hypokalaemia [Not Recovered/Not Resolved]
  - Gastrooesophageal reflux disease [Not Recovered/Not Resolved]
  - Hypomagnesaemia [Not Recovered/Not Resolved]
  - Anaemia folate deficiency [Not Recovered/Not Resolved]
  - Abnormal weight gain [Unknown]
  - Hypercalcaemia [Not Recovered/Not Resolved]
  - Blindness unilateral [Recovering/Resolving]
